FAERS Safety Report 13647989 (Version 2)
Quarter: 2017Q3

REPORT INFORMATION
  Report Type: Report from Study
  Country: BR (occurrence: BR)
  Receive Date: 20170613
  Receipt Date: 20170727
  Transmission Date: 20171127
  Serious: Yes (Death, Hospitalization, Other)
  Sender: FDA-Public Use
  Company Number: BR-JNJFOC-20161223090

PATIENT
  Sex: Male
  Weight: 90 kg

DRUGS (8)
  1. PHENCYCLIDINE HYDROCHLORIDE [Concomitant]
     Active Substance: PHENCYCLIDINE HYDROCHLORIDE
     Route: 065
  2. ASA [Concomitant]
     Active Substance: ASPIRIN
     Dosage: RECEIVING SINCE SOME YEARS
     Route: 065
  3. AZULFIDINE [Concomitant]
     Active Substance: SULFASALAZINE
     Route: 065
  4. LOSARTAN. [Concomitant]
     Active Substance: LOSARTAN
     Dosage: RECEIVING SINCE SOME YEARS
     Route: 065
  5. SIMPONI [Suspect]
     Active Substance: GOLIMUMAB
     Indication: ANKYLOSING SPONDYLITIS
     Route: 058
     Dates: start: 20160903
  6. ENALAPRIL MALEATE. [Concomitant]
     Active Substance: ENALAPRIL MALEATE
     Route: 065
     Dates: start: 201705
  7. ENALAPRIL MALEATE W/HYDROCHLOROTHIAZIDE [Concomitant]
     Route: 065
  8. SIMVASTATIN. [Concomitant]
     Active Substance: SIMVASTATIN
     Route: 065
     Dates: start: 201705

REACTIONS (8)
  - Cerebrovascular accident [Fatal]
  - Seizure [Unknown]
  - Visual impairment [Not Recovered/Not Resolved]
  - Respiratory failure [Fatal]
  - Acute kidney injury [Fatal]
  - Pneumonia bacterial [Fatal]
  - Malnutrition [Fatal]
  - Osteoarthritis [Unknown]

NARRATIVE: CASE EVENT DATE: 2016
